FAERS Safety Report 7019141-8 (Version None)
Quarter: 2010Q3

REPORT INFORMATION
  Report Type: 
  Country: None (occurrence: None)
  Receive Date: 20100928
  Receipt Date: 20100916
  Transmission Date: 20110219
  Serious: Yes (Hospitalization)
  Sender: FDA-Public Use
  Company Number: AU-ELI_LILLY_AND_COMPANY-AU201009003920

PATIENT
  Age: 51 Year
  Sex: Male

DRUGS (8)
  1. GEMZAR [Suspect]
     Indication: PANCREATIC CARCINOMA METASTATIC
     Dosage: 1200 MG, UNKNOWN
     Route: 042
     Dates: start: 20100323, end: 20100907
  2. CREON [Concomitant]
     Dosage: UNK, UNKNOWN
     Route: 065
  3. COLOXYL WITH SENNA [Concomitant]
     Dosage: UNK, UNKNOWN
     Route: 065
  4. NEURONTIN [Concomitant]
     Dosage: UNK, UNKNOWN
     Route: 065
  5. MEXITIL [Concomitant]
     Dosage: UNK, UNKNOWN
     Route: 065
  6. CLONAZEPAM [Concomitant]
     Dosage: UNK, UNKNOWN
     Route: 065
  7. DILAUDID [Concomitant]
     Dosage: UNK, UNKNOWN
     Route: 065
  8. CLONIDINE [Concomitant]
     Dosage: UNK, UNKNOWN
     Route: 065

REACTIONS (2)
  - HOSPITALISATION [None]
  - RENAL FAILURE [None]
